FAERS Safety Report 7786427-9 (Version None)
Quarter: 2011Q3

REPORT INFORMATION
  Report Type: 
  Country: None (occurrence: None)
  Receive Date: 20110929
  Receipt Date: 20110926
  Transmission Date: 20111222
  Serious: Yes (Hospitalization)
  Sender: FDA-Public Use
  Company Number: GB-AMGEN-GBRCT2011043398

PATIENT
  Age: 63 Year
  Sex: Male

DRUGS (9)
  1. EPIRUBICIN [Concomitant]
     Indication: OESOPHAGEAL ADENOCARCINOMA
     Dosage: UNK
     Dates: start: 20110524
  2. OMEPRAZOLE [Concomitant]
     Indication: GASTROOESOPHAGEAL REFLUX DISEASE
     Dosage: 40 MG, UNK
     Dates: start: 20110428
  3. BENDROFLUMETHIAZIDE [Concomitant]
     Indication: BLOOD CHOLESTEROL INCREASED
     Dosage: 2.5 MG, UNK
     Dates: start: 20110428
  4. SIMVASTATIN [Concomitant]
     Indication: BLOOD CHOLESTEROL INCREASED
     Dosage: 40 MG, UNK
     Dates: start: 20110428
  5. OXALIPLATIN [Concomitant]
     Indication: OESOPHAGEAL ADENOCARCINOMA
     Dosage: UNK
     Dates: start: 20110524
  6. CAPECITABINE [Concomitant]
     Indication: OESOPHAGEAL ADENOCARCINOMA
     Dosage: UNK
     Dates: start: 20110524
  7. EZETIMIBE [Concomitant]
     Indication: BLOOD CHOLESTEROL INCREASED
     Dosage: 10 MG, UNK
     Dates: start: 20110428
  8. PERINDOPRIL ERBUMINE [Concomitant]
     Dosage: 4 MG, UNK
  9. PANITUMUMAB [Suspect]
     Indication: OESOPHAGEAL ADENOCARCINOMA
     Dosage: UNK
     Dates: start: 20110524

REACTIONS (2)
  - DIARRHOEA [None]
  - INFECTION [None]
